FAERS Safety Report 20953544 (Version 5)
Quarter: 2024Q4

REPORT INFORMATION
  Report Type: Report from Study
  Country: JP (occurrence: JP)
  Receive Date: 20220613
  Receipt Date: 20241209
  Transmission Date: 20250115
  Serious: Yes (Life-Threatening, Other)
  Sender: BRISTOL-MYERS SQUIBB COMPANY
  Company Number: JP-BRISTOL-MYERS SQUIBB COMPANY-2022-056580

PATIENT
  Age: 63 Year
  Sex: Male
  Weight: 45.7 kg

DRUGS (4)
  1. BREYANZI [Suspect]
     Active Substance: LISOCABTAGENE MARALEUCEL
     Indication: Lymphoplasmacytoid lymphoma/immunocytoma
     Dosage: TYPE OF ADMINISTERED CELLS: CD4-POSITIVE LYMPHOCYTES 0.5X10^8, CD8-POSITIVE LYMPHOCYTES 0.5X10^8
     Route: 042
     Dates: start: 20220210, end: 20220210
  2. EVUSHELD [Concomitant]
     Active Substance: CILGAVIMAB\TIXAGEVIMAB
     Indication: COVID-19 prophylaxis
  3. FLUDARABINE [Concomitant]
     Active Substance: FLUDARABINE PHOSPHATE
     Indication: Lymphoplasmacytoid lymphoma/immunocytoma
     Dosage: TOTAL DOSE: 90MG/M^2
     Dates: start: 20220205
  4. CYCLOPHOSPHAMIDE [Concomitant]
     Active Substance: CYCLOPHOSPHAMIDE
     Indication: Lymphoplasmacytoid lymphoma/immunocytoma
     Dosage: TOTAL DOSE: 900MG/M^2
     Dates: start: 20220205

REACTIONS (5)
  - Immune effector cell-associated neurotoxicity syndrome [Recovering/Resolving]
  - Cytokine release syndrome [Recovered/Resolved]
  - Hypogammaglobulinaemia [Recovered/Resolved]
  - Haemoglobin decreased [Unknown]
  - Platelet count decreased [Unknown]

NARRATIVE: CASE EVENT DATE: 20220211
